FAERS Safety Report 22523902 (Version 1)
Quarter: 2023Q2

REPORT INFORMATION
  Report Type: Spontaneous
  Country: BR (occurrence: BR)
  Receive Date: 20230606
  Receipt Date: 20230606
  Transmission Date: 20230722
  Serious: Yes (Hospitalization, Other)
  Sender: FDA-Public Use
  Company Number: None

PATIENT
  Age: 32 Year
  Sex: Female

DRUGS (15)
  1. MYCOPHENOLATE MOFETIL [Suspect]
     Active Substance: MYCOPHENOLATE MOFETIL
     Indication: Immunosuppressant drug therapy
     Dosage: UNK, (SODIUM MYCOPHENOLATE)
     Route: 065
  2. TACROLIMUS [Suspect]
     Active Substance: TACROLIMUS
     Indication: Immunosuppressant drug therapy
     Dosage: UNK
     Route: 065
  3. METHYLPREDNISOLONE [Suspect]
     Active Substance: METHYLPREDNISOLONE
     Indication: Immunosuppressant drug therapy
     Dosage: UNK, PULSE THERAPY
     Route: 065
  4. METHYLPREDNISOLONE [Suspect]
     Active Substance: METHYLPREDNISOLONE
     Indication: Renal impairment
     Dosage: UNK, PERFORMED AGAIN
     Route: 065
  5. PREDNISOLONE [Suspect]
     Active Substance: PREDNISOLONE
     Indication: Immunosuppressant drug therapy
     Dosage: UNK
     Route: 065
  6. CLONAZEPAM [Concomitant]
     Active Substance: CLONAZEPAM
     Indication: Product used for unknown indication
     Dosage: UNK
     Route: 065
  7. ENALAPRIL [Concomitant]
     Active Substance: ENALAPRIL
     Indication: Product used for unknown indication
     Dosage: UNK
     Route: 065
  8. GABAPENTIN [Concomitant]
     Active Substance: GABAPENTIN
     Indication: Product used for unknown indication
     Dosage: UNK
     Route: 065
  9. LEVOTHYROXINE [Concomitant]
     Active Substance: LEVOTHYROXINE
     Indication: Product used for unknown indication
     Dosage: UNK
     Route: 065
  10. RANITIDINE [Concomitant]
     Active Substance: RANITIDINE
     Indication: Product used for unknown indication
     Dosage: UNK
     Route: 065
  11. SULFAMETHOXAZOLE\TRIMETHOPRIM [Concomitant]
     Active Substance: SULFAMETHOXAZOLE\TRIMETHOPRIM
     Indication: Prophylaxis
     Dosage: UNK
     Route: 065
  12. POLYMYXIN B [Concomitant]
     Active Substance: POLYMYXIN B
     Indication: Urinary tract infection bacterial
     Dosage: 20000 INTERNATIONAL UNIT/KILOGRAM
     Route: 042
  13. POLYMYXIN B [Concomitant]
     Active Substance: POLYMYXIN B
     Indication: Klebsiella infection
     Dosage: UNK, OD (250,000 UNITS IN 500 ML OF SALINE ONCE DAILY) TREATMENT DOSE
     Route: 043
  14. POLYMYXIN B [Concomitant]
     Active Substance: POLYMYXIN B
     Dosage: UNK, REINTRODUCED EMPIRICALLY
     Route: 065
  15. POLYMYXIN B [Concomitant]
     Active Substance: POLYMYXIN B
     Dosage: UNK
     Route: 065

REACTIONS (6)
  - Cytomegalovirus infection reactivation [Unknown]
  - Escherichia infection [Unknown]
  - Gastroenteritis [Unknown]
  - Bacterial infection [Recovered/Resolved]
  - Klebsiella infection [Recovered/Resolved]
  - Urinary tract infection [Recovered/Resolved]
